FAERS Safety Report 8492806-7 (Version None)
Quarter: 2012Q3

REPORT INFORMATION
  Report Type: 
  Country: None (occurrence: None)
  Receive Date: 20120706
  Receipt Date: 20120627
  Transmission Date: 20120928
  Serious: Yes (Other)
  Sender: FDA-Public Use
  Company Number: US-ASTRAZENECA-2011SE22965

PATIENT
  Age: 57 Year
  Sex: Male

DRUGS (2)
  1. LASIX [Concomitant]
     Indication: DEHYDRATION
  2. NEXIUM [Suspect]
     Route: 048

REACTIONS (6)
  - RENAL FAILURE [None]
  - FATIGUE [None]
  - DRUG INEFFECTIVE [None]
  - DIABETES MELLITUS [None]
  - HYPERSOMNIA [None]
  - LIVER FUNCTION TEST ABNORMAL [None]
